FAERS Safety Report 8466524-5 (Version None)
Quarter: 2012Q2

REPORT INFORMATION
  Report Type: 
  Country: None (occurrence: None)
  Receive Date: 20120626
  Receipt Date: 20120620
  Transmission Date: 20120825
  Serious: Yes (Life-Threatening, Hospitalization)
  Sender: FDA-Public Use
  Company Number: FR-PFIZER INC-2004013445

PATIENT
  Age: 18 Year
  Sex: Female

DRUGS (6)
  1. SACCHAROMYCES BOULARDII [Concomitant]
     Route: 065
  2. BACTRIM DS [Suspect]
     Route: 048
     Dates: start: 20031223, end: 20031230
  3. AKRINOR [Suspect]
     Indication: ILL-DEFINED DISORDER
     Dosage: BID
     Route: 048
     Dates: start: 20031027, end: 20040106
  4. FEMODENE [Suspect]
     Indication: ILL-DEFINED DISORDER
     Route: 048
     Dates: start: 20031122, end: 20040106
  5. DEBRIDAT [Suspect]
     Route: 048
     Dates: start: 20031218, end: 20040106
  6. IBUPROFEN [Suspect]
     Route: 048
     Dates: start: 20031122, end: 20040106

REACTIONS (5)
  - COLITIS [None]
  - ILEITIS [None]
  - ALANINE AMINOTRANSFERASE INCREASED [None]
  - DRUG-INDUCED LIVER INJURY [None]
  - ASPARTATE AMINOTRANSFERASE INCREASED [None]
